FAERS Safety Report 4765976-1 (Version None)
Quarter: 2005Q3

REPORT INFORMATION
  Report Type: 
  Country: None (occurrence: None)
  Receive Date: 20050912
  Receipt Date: 20050831
  Transmission Date: 20060218
  Serious: Yes (Other)
  Sender: FDA-Public Use
  Company Number: PHBS2005FI12746

PATIENT
  Sex: Male
  Weight: 4 kg

DRUGS (2)
  1. CARBAMAZEPINE [Suspect]
     Route: 064
  2. VIGABATRIN [Suspect]
     Route: 064

REACTIONS (6)
  - DRUG EXPOSURE DURING PREGNANCY [None]
  - EAR MALFORMATION [None]
  - FEEDING DISORDER NEONATAL [None]
  - HYPOTONIA NEONATAL [None]
  - RETROGNATHIA [None]
  - TACHYPNOEA [None]
